FAERS Safety Report 9317601 (Version 2)
Quarter: 2013Q2

REPORT INFORMATION
  Report Type: Spontaneous
  Country: FR (occurrence: FR)
  Receive Date: 20130530
  Receipt Date: 20130618
  Transmission Date: 20140414
  Serious: Yes (Life-Threatening, Other)
  Sender: FDA-Public Use
  Company Number: FR-PFIZER INC-2013162618

PATIENT
  Age: 67 Year
  Sex: Male

DRUGS (5)
  1. PRODILANTIN [Suspect]
     Dosage: 75MG/ML, 1250 MG PHENYTOIN SODIUM EQUIVALENTS DURING 30 MINUTES
     Route: 042
     Dates: start: 20130424, end: 20130424
  2. RIVOTRIL [Concomitant]
     Dosage: UNK
     Dates: start: 20130424
  3. HYPNOVEL [Concomitant]
     Indication: SEDATION
     Dosage: UNK
     Dates: start: 20130424
  4. SUFENTANIL [Concomitant]
     Indication: SEDATION
     Dosage: UNK
     Dates: start: 20130424
  5. ASPEGIC [Concomitant]
     Dosage: UNK
     Dates: start: 20130424

REACTIONS (3)
  - Cardio-respiratory arrest [Recovered/Resolved]
  - Endocarditis [Unknown]
  - Ventricular hypokinesia [Unknown]
